FAERS Safety Report 11168447 (Version 1)
Quarter: 2015Q2

REPORT INFORMATION
  Report Type: Spontaneous
  Country: FR (occurrence: FR)
  Receive Date: 20150605
  Receipt Date: 20150605
  Transmission Date: 20150821
  Serious: Yes (Life-Threatening, Other)
  Sender: FDA-Public Use
  Company Number: FR-GLAXOSMITHKLINE INC.-FR2015GSK075868

PATIENT
  Age: 36 Year
  Sex: Male
  Weight: 70 kg

DRUGS (9)
  1. ATROVENT [Concomitant]
     Active Substance: IPRATROPIUM BROMIDE
  2. INEXIUM [Concomitant]
     Active Substance: ESOMEPRAZOLE
  3. CREON [Concomitant]
     Active Substance: PANCRELIPASE AMYLASE\PANCRELIPASE LIPASE\PANCRELIPASE PROTEASE
  4. ZOVIRAX [Suspect]
     Active Substance: ACYCLOVIR
     Indication: HERPES ZOSTER
     Dosage: 600 MG, BID
     Route: 042
     Dates: start: 20150418, end: 20150419
  5. ZOVIRAX [Suspect]
     Active Substance: ACYCLOVIR
     Dosage: 600 MG, TID
     Dates: start: 20150419, end: 20150420
  6. INNOVAIR [Concomitant]
     Active Substance: BECLOMETHASONE DIPROPIONATE\FORMOTEROL
  7. BRICANYL [Concomitant]
     Active Substance: TERBUTALINE SULFATE
  8. SINGULAIR [Concomitant]
     Active Substance: MONTELUKAST SODIUM
  9. OXYNORM [Concomitant]
     Active Substance: OXYCODONE HYDROCHLORIDE

REACTIONS (2)
  - Thrombotic microangiopathy [Recovering/Resolving]
  - Acute kidney injury [Recovering/Resolving]

NARRATIVE: CASE EVENT DATE: 20150420
